FAERS Safety Report 25791546 (Version 1)
Quarter: 2025Q3

REPORT INFORMATION
  Report Type: Spontaneous
  Country: US (occurrence: None)
  Receive Date: 20250911
  Receipt Date: 20250911
  Transmission Date: 20251021
  Serious: Yes (Other)
  Sender: FDA-CTU
  Company Number: None

PATIENT
  Age: 16 Year
  Sex: Male
  Weight: 70 kg

DRUGS (1)
  1. VOXZOGO [Suspect]
     Active Substance: VOSORITIDE
     Indication: Osteochondrodysplasia
     Dosage: FREQUENCY : DAILY;?
     Route: 058
     Dates: start: 20220128, end: 20250828

REACTIONS (1)
  - Scoliosis [None]

NARRATIVE: CASE EVENT DATE: 20250828
